FAERS Safety Report 16807973 (Version 1)
Quarter: 2019Q3

REPORT INFORMATION
  Report Type: Report from Study
  Country: None (occurrence: US)
  Receive Date: 20190915
  Receipt Date: 20190915
  Transmission Date: 20191005
  Serious: Yes (Hospitalization)
  Sender: FDA-Public Use
  Company Number: US-ABBVIE-19K-163-2919586-00

PATIENT
  Sex: Male

DRUGS (2)
  1. HUMIRA [Suspect]
     Active Substance: ADALIMUMAB
     Indication: PSORIASIS
  2. HUMIRA [Suspect]
     Active Substance: ADALIMUMAB
     Indication: HIDRADENITIS
     Dosage: CITRATE FREE
     Route: 058

REACTIONS (10)
  - Blood glucose decreased [Unknown]
  - Neuropathy peripheral [Unknown]
  - Blood cholesterol increased [Unknown]
  - Hypotension [Unknown]
  - Liver disorder [Unknown]
  - Skin discolouration [Unknown]
  - Skin lesion [Unknown]
  - Scar [Unknown]
  - Hepatic steatosis [Unknown]
  - Injection site pain [Unknown]
